FAERS Safety Report 21085425 (Version 1)
Quarter: 2022Q3

REPORT INFORMATION
  Report Type: Spontaneous
  Country: JP (occurrence: JP)
  Receive Date: 20220714
  Receipt Date: 20220714
  Transmission Date: 20221027
  Serious: Yes (Hospitalization, Other)
  Sender: FDA-Public Use
  Company Number: JP-BAYER-2022A094170

PATIENT
  Age: 9 Decade
  Sex: Male
  Weight: 42 kg

DRUGS (8)
  1. XARELTO [Suspect]
     Active Substance: RIVAROXABAN
     Indication: Aortic valve incompetence
     Dosage: 10 MG, QD
     Route: 048
  2. FEXOFENADINE [Concomitant]
     Active Substance: FEXOFENADINE HYDROCHLORIDE
     Dosage: 60 MG, BID
  3. RABEPRAZOLE [Concomitant]
     Active Substance: RABEPRAZOLE
  4. VALSARTAN [Concomitant]
     Active Substance: VALSARTAN
  5. REBAMIPIDE [Concomitant]
     Active Substance: REBAMIPIDE
  6. PREDONINE [Concomitant]
     Active Substance: PREDNISOLONE
  7. FEBUXOSTAT [Concomitant]
     Active Substance: FEBUXOSTAT
  8. AZOSEMIDE [Concomitant]
     Active Substance: AZOSEMIDE

REACTIONS (3)
  - Thalamus haemorrhage [Recovering/Resolving]
  - Atrioventricular block complete [Unknown]
  - Off label use [Unknown]

NARRATIVE: CASE EVENT DATE: 20190101
